FAERS Safety Report 18172248 (Version 1)
Quarter: 2020Q3

REPORT INFORMATION
  Report Type: Spontaneous
  Country: US (occurrence: US)
  Receive Date: 20200819
  Receipt Date: 20200819
  Transmission Date: 20201103
  Serious: Yes (Other)
  Sender: FDA-Public Use
  Company Number: US-OMEROS CORPORATION-2020OME00002

PATIENT
  Age: 76 Year
  Sex: Female
  Weight: 63.49 kg

DRUGS (25)
  1. PROPARACAINE [Concomitant]
     Active Substance: PROPARACAINE
     Dosage: X 3 PRIOR TO PROCEDURE
     Dates: start: 2020, end: 2020
  2. TIMOLOL. [Concomitant]
     Active Substance: TIMOLOL
     Dosage: UNK
     Dates: start: 20200623, end: 20200623
  3. OFLOXACIN. [Concomitant]
     Active Substance: OFLOXACIN
     Dosage: X 3 PRIOR TO PROCEDURE
     Dates: start: 2020, end: 2020
  4. VERSED [Concomitant]
     Active Substance: MIDAZOLAM HYDROCHLORIDE
     Dosage: 2 MG PRIOR TO PROCEDURE
     Route: 042
     Dates: start: 2020, end: 2020
  5. OMIDRIA [Suspect]
     Active Substance: KETOROLAC\PHENYLEPHRINE
     Indication: VISION CORRECTION OPERATION
  6. LIDOCAINE 1% PF WITH EPINEPHRINE 1:1000 PF [Concomitant]
     Dosage: UNK
     Dates: start: 20200623, end: 20200623
  7. PHENYLEPHRINE [Concomitant]
     Active Substance: PHENYLEPHRINE HYDROCHLORIDE
     Dosage: X 3 PRIOR TO PROCEDURE
     Dates: start: 2020, end: 2020
  8. PRED FORTE [Concomitant]
     Active Substance: PREDNISOLONE ACETATE
  9. OXYBUTYNIN CHLORIDE. [Concomitant]
     Active Substance: OXYBUTYNIN CHLORIDE
  10. VISCOAT [Concomitant]
     Dosage: UNK
     Dates: start: 20200623, end: 20200623
  11. ANIKAVISC [Concomitant]
     Dosage: UNK
     Dates: start: 20200623, end: 20200623
  12. AVELOX [Concomitant]
     Active Substance: MOXIFLOXACIN HYDROCHLORIDE
     Dosage: 0.1 ML
     Dates: start: 20200623, end: 20200623
  13. DULOXETINE. [Concomitant]
     Active Substance: DULOXETINE
  14. OMIDRIA [Suspect]
     Active Substance: KETOROLAC\PHENYLEPHRINE
     Indication: CATARACT OPERATION
     Dosage: 4 ML PER 500 CC BSS SOLUTION
     Route: 047
     Dates: start: 20200623, end: 20200623
  15. PROPARACAINE [Concomitant]
     Active Substance: PROPARACAINE
     Dosage: UNK
     Dates: start: 20200623, end: 20200623
  16. MELOXICAM. [Concomitant]
     Active Substance: MELOXICAM
  17. OMEPRAZOLE. [Concomitant]
     Active Substance: OMEPRAZOLE
  18. HYDROCODONE [Concomitant]
     Active Substance: HYDROCODONE
  19. OMIDRIA [Suspect]
     Active Substance: KETOROLAC\PHENYLEPHRINE
     Indication: INTRAOCULAR LENS IMPLANT
  20. LISINOPRIL. [Concomitant]
     Active Substance: LISINOPRIL
  21. METOPROLOL. [Concomitant]
     Active Substance: METOPROLOL
  22. BSS SOLUTION (ALCON) [Concomitant]
     Dosage: 4 ML OMIDRIA PER 500 CC BSS SOLUTION
     Dates: start: 20200623, end: 20200623
  23. BETADINE [Concomitant]
     Active Substance: POVIDONE-IODINE
     Dosage: UNK
     Dates: start: 20200623, end: 20200623
  24. CYCLOGYL [Concomitant]
     Active Substance: CYCLOPENTOLATE HYDROCHLORIDE
     Dosage: X 3 PRIOR TO PROCEDURE
     Dates: start: 2020, end: 2020
  25. LESSDROPS [Concomitant]

REACTIONS (1)
  - Vitritis [Recovered/Resolved]

NARRATIVE: CASE EVENT DATE: 20200714
